FAERS Safety Report 4843236-8 (Version None)
Quarter: 2005Q4

REPORT INFORMATION
  Report Type: 
  Country: None (occurrence: None)
  Receive Date: 20051201
  Receipt Date: 20050929
  Transmission Date: 20060501
  Serious: Yes (Hospitalization, Other)
  Sender: FDA-Public Use
  Company Number: US-MERCK-0510USA00576

PATIENT
  Age: 62 Year
  Sex: Female
  Weight: 71 kg

DRUGS (1)
  1. VIOXX [Suspect]
     Route: 048
     Dates: start: 20021230, end: 20030512

REACTIONS (6)
  - BLOOD PRESSURE DECREASED [None]
  - CARDIOVASCULAR DISORDER [None]
  - CEREBROVASCULAR ACCIDENT [None]
  - COLON OPERATION [None]
  - EPISTAXIS [None]
  - INTESTINAL FUNCTIONAL DISORDER [None]
